FAERS Safety Report 6883585-5 (Version None)
Quarter: 2010Q3

REPORT INFORMATION
  Report Type: 
  Country: None (occurrence: None)
  Receive Date: 20100729
  Receipt Date: 20100723
  Transmission Date: 20110219
  Serious: Yes (Death, Life-Threatening)
  Sender: FDA-Public Use
  Company Number: SE-BRISTOL-MYERS SQUIBB COMPANY-15205974

PATIENT
  Age: 39 Year
  Sex: Male

DRUGS (8)
  1. PACLITAXEL [Suspect]
     Indication: MALIGNANT MELANOMA
     Route: 042
     Dates: start: 20100128
  2. CARBOPLATIN [Suspect]
     Indication: MALIGNANT MELANOMA
     Dates: start: 20100128
  3. PRIMPERAN TAB [Concomitant]
  4. OMEPRAZOLE [Concomitant]
  5. CETIRIZINE HCL [Concomitant]
  6. BETAPRED [Concomitant]
  7. TAVEGYL [Concomitant]
  8. DACARBAZINE [Concomitant]

REACTIONS (1)
  - ANAPHYLACTIC SHOCK [None]
